FAERS Safety Report 23640149 (Version 1)
Quarter: 2024Q1

REPORT INFORMATION
  Report Type: Spontaneous
  Country: IT (occurrence: IT)
  Receive Date: 20240317
  Receipt Date: 20240317
  Transmission Date: 20240409
  Serious: Yes (Hospitalization)
  Sender: FDA-Public Use
  Company Number: None

PATIENT
  Age: 65 Year
  Sex: Female
  Weight: 50 kg

DRUGS (1)
  1. OXALIPLATIN [Suspect]
     Active Substance: OXALIPLATIN
     Indication: Pancreatic neoplasm
     Dosage: FIRST INFUSION: 12/12/2023 OXALIPLATIN IS ADMINISTERED EVERY 14 DAYS.
     Dates: start: 20240213, end: 20240213

REACTIONS (4)
  - Blindness transient [Recovered/Resolved]
  - Acute respiratory failure [Recovering/Resolving]
  - Eyelid ptosis [Recovering/Resolving]
  - Seizure [Recovered/Resolved]

NARRATIVE: CASE EVENT DATE: 20240213
